FAERS Safety Report 15747841 (Version 9)
Quarter: 2021Q2

REPORT INFORMATION
  Report Type: Report from Study
  Country: FR (occurrence: FR)
  Receive Date: 20181221
  Receipt Date: 20210623
  Transmission Date: 20210716
  Serious: Yes (Death, Hospitalization, Other)
  Sender: FDA-Public Use
  Company Number: FR-BRISTOL-MYERS SQUIBB COMPANY-BMS-2018-112790

PATIENT
  Age: 69 Year
  Sex: Male

DRUGS (2)
  1. NIVOLUMAB [Suspect]
     Active Substance: NIVOLUMAB
     Dosage: 240 MG, Q2WK
     Route: 042
     Dates: start: 20181116, end: 20181126
  2. NIVOLUMAB [Suspect]
     Active Substance: NIVOLUMAB
     Indication: RENAL CELL CARCINOMA
     Dosage: 240 MG, Q2WK
     Route: 042
     Dates: start: 20181112, end: 20181112

REACTIONS (16)
  - General physical condition abnormal [Recovered/Resolved]
  - Arthralgia [Unknown]
  - Erythema [Recovered/Resolved]
  - Diarrhoea [Unknown]
  - Nausea [Unknown]
  - Dysphagia [Not Recovered/Not Resolved]
  - Yersinia infection [Unknown]
  - Migraine [Unknown]
  - Atrial thrombosis [Recovering/Resolving]
  - Exophthalmos [Unknown]
  - Asthenia [Unknown]
  - Malignant neoplasm progression [Recovered/Resolved]
  - Gastroenteritis [Unknown]
  - Oedema peripheral [Unknown]
  - Weight decreased [Unknown]
  - Lacrimation increased [Recovered/Resolved]

NARRATIVE: CASE EVENT DATE: 20181116
